FAERS Safety Report 10466633 (Version 1)
Quarter: 2014Q3

REPORT INFORMATION
  Report Type: Spontaneous
  Country: US (occurrence: None)
  Receive Date: 20140919
  Receipt Date: 20140919
  Transmission Date: 20150326
  Serious: Yes (Other)
  Sender: FDA-Public Use
  Company Number: None

PATIENT
  Age: 26 Year
  Sex: Female
  Weight: 46 kg

DRUGS (1)
  1. BUPROPION SR 150 MG SUN PHARMA [Suspect]
     Active Substance: BUPROPION
     Indication: DEPRESSION
     Route: 055
     Dates: start: 20140908, end: 20140916

REACTIONS (7)
  - Depression [None]
  - Anxiety [None]
  - Dizziness [None]
  - Headache [None]
  - Product quality issue [None]
  - Cold sweat [None]
  - Abdominal pain [None]

NARRATIVE: CASE EVENT DATE: 20140915
